FAERS Safety Report 7075355-2 (Version None)
Quarter: 2010Q4

REPORT INFORMATION
  Report Type: 
  Country: None (occurrence: None)
  Receive Date: 20101030
  Receipt Date: 20100902
  Transmission Date: 20110411
  Serious: No
  Sender: FDA-Public Use
  Company Number: US-WYE-H17309810

PATIENT
  Age: 23 Year
  Sex: Female
  Weight: 68.1 kg

DRUGS (2)
  1. ADVIL PM [Suspect]
     Indication: HEADACHE
     Dosage: 1 CAPLET ONCE
     Route: 048
     Dates: start: 20100901, end: 20100901
  2. ADVIL PM [Suspect]
     Indication: ANALGESIC THERAPY

REACTIONS (2)
  - AURICULAR SWELLING [None]
  - URTICARIA [None]
